FAERS Safety Report 7079716-7 (Version None)
Quarter: 2010Q4

REPORT INFORMATION
  Report Type: 
  Country: None (occurrence: None)
  Receive Date: 20101102
  Receipt Date: 20101027
  Transmission Date: 20110411
  Serious: Yes (Death, Hospitalization)
  Sender: FDA-Public Use
  Company Number: PHHY2010IT61228

PATIENT
  Sex: Male

DRUGS (2)
  1. TOLEP [Suspect]
     Indication: POST-TRAUMATIC EPILEPSY
     Dosage: 900 MG DAILY
     Route: 048
     Dates: start: 20090101, end: 20100721
  2. EUTIROX [Concomitant]
     Dosage: 1 DF, QD
     Route: 048

REACTIONS (14)
  - ACTIVITIES OF DAILY LIVING IMPAIRED [None]
  - CEREBRAL ISCHAEMIA [None]
  - CONFUSIONAL STATE [None]
  - CONVULSION [None]
  - CULTURE URINE POSITIVE [None]
  - DEATH [None]
  - DELIRIUM [None]
  - ESCHERICHIA INFECTION [None]
  - HAEMOGLOBIN DECREASED [None]
  - HALLUCINATION [None]
  - HYPONATRAEMIA [None]
  - HYPONATRAEMIC ENCEPHALOPATHY [None]
  - MONOPARESIS [None]
  - PLEURAL CALCIFICATION [None]
